FAERS Safety Report 16929017 (Version 4)
Quarter: 2021Q2

REPORT INFORMATION
  Report Type: Report from Study
  Country: CA (occurrence: CA)
  Receive Date: 20191017
  Receipt Date: 20210616
  Transmission Date: 20210716
  Serious: Yes (Hospitalization, Other)
  Sender: FDA-Public Use
  Company Number: CA-GLAXOSMITHKLINE-CA2019AMR184250

PATIENT
  Sex: Male

DRUGS (32)
  1. MEPOLIZUMAB [Suspect]
     Active Substance: MEPOLIZUMAB
     Indication: PRODUCT USED FOR UNKNOWN INDICATION
     Dosage: 100 MG, Z(MONTHLY)
     Dates: start: 20160830
  2. PREDNISONE. [Suspect]
     Active Substance: PREDNISONE
     Dosage: 50 MG, UNK
     Route: 048
  3. SEEBRI [Suspect]
     Active Substance: GLYCOPYRROLATE
     Indication: PRODUCT USED FOR UNKNOWN INDICATION
     Dosage: 1 PUFF(S), BID
  4. SEEBRI [Suspect]
     Active Substance: GLYCOPYRROLATE
     Dosage: 1 PUFF(S), QD
     Route: 055
  5. ZAFIRLUKAST. [Suspect]
     Active Substance: ZAFIRLUKAST
     Indication: PRODUCT USED FOR UNKNOWN INDICATION
     Dosage: 2 DF, QD 20 MG
     Route: 048
  6. FLUTICASONE + SALMETEROL [Suspect]
     Active Substance: FLUTICASONE FUROATE\SALMETEROL XINAFOATE
     Indication: PRODUCT USED FOR UNKNOWN INDICATION
     Dosage: UNK
  7. COMBIVENT RESPIMAT [Suspect]
     Active Substance: ALBUTEROL SULFATE\IPRATROPIUM BROMIDE
     Indication: PRODUCT USED FOR UNKNOWN INDICATION
     Dosage: 1 PUFF(S), QID
  8. PULMICORT TURBUHALER [Suspect]
     Active Substance: BUDESONIDE
     Indication: PRODUCT USED FOR UNKNOWN INDICATION
     Dosage: 120 DF, Z (1 MG)
     Route: 055
  9. BREO ELLIPTA [Suspect]
     Active Substance: FLUTICASONE FUROATE\VILANTEROL TRIFENATATE
     Indication: PRODUCT USED FOR UNKNOWN INDICATION
     Dosage: 1 PUFF(S), QD,200
     Route: 055
  10. PREDNISONE. [Suspect]
     Active Substance: PREDNISONE
     Dosage: 2 MG
  11. GLYCOPYRRONIUM BROMIDE [Suspect]
     Active Substance: GLYCOPYRROLATE
     Dosage: UNK
  12. LEVOFLOXACIN. [Suspect]
     Active Substance: LEVOFLOXACIN
     Indication: PRODUCT USED FOR UNKNOWN INDICATION
     Dosage: 10 DF, QD , (TABLET),(750 MG )
  13. ACCOLATE [Suspect]
     Active Substance: ZAFIRLUKAST
     Indication: PRODUCT USED FOR UNKNOWN INDICATION
     Dosage: 20 MG, BID
  14. WINPRED [Suspect]
     Active Substance: PREDNISONE
     Indication: PRODUCT USED FOR UNKNOWN INDICATION
     Dosage: 4 DF, QID
  15. AMOXICILLIN + CLAVULANATE POTASSIUM [Concomitant]
     Active Substance: AMOXICILLIN\CLAVULANATE POTASSIUM
     Indication: PRODUCT USED FOR UNKNOWN INDICATION
     Dosage: 10 DF (TABLET), BID
  16. AMOXICILLIN + CLAVULANATE POTASSIUM [Concomitant]
     Active Substance: AMOXICILLIN\CLAVULANATE POTASSIUM
     Dosage: 42 DF (TABLET), Z
  17. DYMISTA [Concomitant]
     Active Substance: AZELASTINE HYDROCHLORIDE\FLUTICASONE PROPIONATE
     Dosage: 2 DF, QD
  18. SINGULAIR [Suspect]
     Active Substance: MONTELUKAST SODIUM
     Indication: PRODUCT USED FOR UNKNOWN INDICATION
     Dosage: UNK UNK, QD
  19. PULMICORT RESPULES [Suspect]
     Active Substance: BUDESONIDE
     Indication: PRODUCT USED FOR UNKNOWN INDICATION
     Dosage: UNK UNK, BID
  20. PREDNISONE. [Suspect]
     Active Substance: PREDNISONE
     Indication: PRODUCT USED FOR UNKNOWN INDICATION
     Dosage: 5 MG, UNK
     Route: 048
  21. PREDNISONE. [Suspect]
     Active Substance: PREDNISONE
     Dosage: 7 MG, QD
  22. ULTRAM [Suspect]
     Active Substance: TRAMADOL HYDROCHLORIDE
     Indication: PRODUCT USED FOR UNKNOWN INDICATION
     Dosage: 30 DF, UNK
  23. GLYCOPYRRONIUM BROMIDE [Suspect]
     Active Substance: GLYCOPYRROLATE
     Indication: PRODUCT USED FOR UNKNOWN INDICATION
     Dosage: 1 DF, QD
  24. ADVAIR HFA [Suspect]
     Active Substance: FLUTICASONE PROPIONATE\SALMETEROL XINAFOATE
     Indication: PRODUCT USED FOR UNKNOWN INDICATION
     Dosage: UNK
  25. PREDNISONE. [Suspect]
     Active Substance: PREDNISONE
     Dosage: 5.5 MG, QD
  26. PULMICORT TURBUHALER [Suspect]
     Active Substance: BUDESONIDE
     Dosage: 200 DF, Z
     Route: 055
  27. BUDESONIDE. [Suspect]
     Active Substance: BUDESONIDE
     Indication: PRODUCT USED FOR UNKNOWN INDICATION
     Dosage: UNK
     Route: 055
  28. SINGULAIR [Suspect]
     Active Substance: MONTELUKAST SODIUM
     Dosage: UNK
  29. SPIRIVA [Suspect]
     Active Substance: TIOTROPIUM BROMIDE MONOHYDRATE
     Indication: PRODUCT USED FOR UNKNOWN INDICATION
     Dosage: UNK
  30. TRAMADOL. [Suspect]
     Active Substance: TRAMADOL
     Indication: PRODUCT USED FOR UNKNOWN INDICATION
     Dosage: 30 DF, Z (37.5?325 MG)
  31. DYMISTA [Concomitant]
     Active Substance: AZELASTINE HYDROCHLORIDE\FLUTICASONE PROPIONATE
     Indication: PRODUCT USED FOR UNKNOWN INDICATION
     Dosage: 2 DF, BID
  32. IPRATROPIUM BROMIDE + SALBUTAMOL SULPHATE [Concomitant]
     Active Substance: ALBUTEROL SULFATE\IPRATROPIUM BROMIDE
     Indication: PRODUCT USED FOR UNKNOWN INDICATION
     Dosage: 1 DF, Z 4 EVERY 1 DAYS

REACTIONS (29)
  - Productive cough [Unknown]
  - Chills [Unknown]
  - Fatigue [Unknown]
  - Wheezing [Unknown]
  - Sinus operation [Unknown]
  - Asthma [Unknown]
  - Hiatus hernia [Unknown]
  - Sputum discoloured [Unknown]
  - Dry skin [Unknown]
  - Pyrexia [Unknown]
  - Condition aggravated [Unknown]
  - Respiratory disorder [Unknown]
  - Pulmonary mass [Unknown]
  - Upper respiratory tract infection [Unknown]
  - Aphonia [Unknown]
  - Loss of personal independence in daily activities [Unknown]
  - Emphysema [Unknown]
  - Asthenia [Unknown]
  - Precancerous condition [Unknown]
  - Sputum purulent [Unknown]
  - Infection [Unknown]
  - Prolonged expiration [Unknown]
  - Chest discomfort [Unknown]
  - Chronic sinusitis [Unknown]
  - Pneumonia [Unknown]
  - Cough [Unknown]
  - Dyspnoea [Unknown]
  - Dyspnoea exertional [Unknown]
  - Tachycardia [Unknown]
